FAERS Safety Report 7905791-0 (Version None)
Quarter: 2011Q4

REPORT INFORMATION
  Report Type: 
  Country: None (occurrence: None)
  Receive Date: 20111110
  Receipt Date: 20111103
  Transmission Date: 20120403
  Serious: Yes (Other)
  Sender: FDA-Public Use
  Company Number: US-JNJFOC-20111102051

PATIENT
  Sex: Male

DRUGS (4)
  1. NUCYNTA ER [Suspect]
     Dosage: TWICE A DAY
     Route: 048
  2. ACE INHIBITOR NOS [Concomitant]
     Indication: HYPERTENSION
     Route: 065
  3. BETA BLOCKERS, NOS [Concomitant]
     Indication: HYPERTENSION
     Route: 065
  4. NUCYNTA ER [Suspect]
     Indication: PAIN
     Dosage: 100MG TWICE A DAY
     Route: 048

REACTIONS (1)
  - BLOOD PRESSURE SYSTOLIC INCREASED [None]
